FAERS Safety Report 10098383 (Version 2)
Quarter: 2014Q2

REPORT INFORMATION
  Report Type: Report from Study
  Country: US (occurrence: US)
  Receive Date: 20140423
  Receipt Date: 20140423
  Transmission Date: 20141212
  Serious: Yes (Hospitalization)
  Sender: FDA-Public Use
  Company Number: US-ASTRAZENECA-2014SE07676

PATIENT
  Age: 773 Month
  Sex: Female
  Weight: 74.4 kg

DRUGS (10)
  1. BRILINTA [Suspect]
     Indication: ACUTE CORONARY SYNDROME
     Route: 048
     Dates: start: 20130924
  2. BRILINTA [Suspect]
     Indication: ACUTE CORONARY SYNDROME
     Route: 048
  3. ASPIRIN [Suspect]
     Route: 048
     Dates: start: 20130924
  4. LISINOPRIL [Suspect]
     Indication: ESSENTIAL HYPERTENSION
     Route: 048
     Dates: start: 20131007, end: 20131022
  5. LISINOPRIL [Suspect]
     Indication: ESSENTIAL HYPERTENSION
     Route: 048
     Dates: start: 20131022
  6. LISINOPRIL [Suspect]
     Indication: ESSENTIAL HYPERTENSION
     Route: 048
     Dates: start: 20131022, end: 20131022
  7. METOPROLOL TARTRATE [Suspect]
     Route: 048
     Dates: start: 20131007
  8. PROMETHAZINE HCL [Concomitant]
     Dosage: 25 MG, 1 TABLET EVERY 4-6 HOURS AS NEEDED
     Route: 048
  9. TRAMADOL HCL [Concomitant]
     Dosage: 50 MG, 1 TABLET EVERY 12 HOURS AS NEEDED
     Route: 048
  10. SIMVASTATIN [Concomitant]
     Dates: end: 201309

REACTIONS (15)
  - Haemorrhagic anaemia [Unknown]
  - Gastrointestinal haemorrhage [Unknown]
  - Diarrhoea haemorrhagic [Unknown]
  - Rectal haemorrhage [Unknown]
  - Blood urea increased [Unknown]
  - Blood creatinine increased [Unknown]
  - Faeces discoloured [Unknown]
  - Dyspnoea [Recovering/Resolving]
  - Diarrhoea [Unknown]
  - Chest pain [Recovered/Resolved]
  - Appetite disorder [Unknown]
  - Weight decreased [Unknown]
  - Hypercholesterolaemia [Unknown]
  - Blood pressure increased [Unknown]
  - Drug ineffective [Unknown]
